FAERS Safety Report 7509101-2 (Version None)
Quarter: 2011Q2

REPORT INFORMATION
  Report Type: 
  Country: None (occurrence: None)
  Receive Date: 20110527
  Receipt Date: 20110513
  Transmission Date: 20111010
  Serious: Yes (Hospitalization)
  Sender: FDA-Public Use
  Company Number: DK-JNJFOC-20110102038

PATIENT
  Sex: Male

DRUGS (4)
  1. ASACOL [Concomitant]
     Indication: COLITIS ULCERATIVE
     Route: 048
     Dates: start: 20101120
  2. REMICADE [Suspect]
     Indication: COLITIS ULCERATIVE
     Dosage: HAD 2 DOSES
     Route: 042
     Dates: start: 20101124, end: 20101208
  3. AZATHIOPRINE [Concomitant]
     Indication: COLITIS ULCERATIVE
     Route: 048
     Dates: start: 20101120
  4. PREDNISOLONE [Concomitant]
     Indication: COLITIS ULCERATIVE
     Route: 048
     Dates: start: 20101115

REACTIONS (2)
  - VENTRICULAR TACHYCARDIA [None]
  - PALPITATIONS [None]
